FAERS Safety Report 7441952-5 (Version None)
Quarter: 2011Q2

REPORT INFORMATION
  Report Type: 
  Country: None (occurrence: None)
  Receive Date: 20110428
  Receipt Date: 20100723
  Transmission Date: 20111010
  Serious: No
  Sender: FDA-Public Use
  Company Number: US-ASTRAZENECA-2010SE34547

PATIENT
  Age: 59 Year
  Sex: Female
  Weight: 65.8 kg

DRUGS (7)
  1. VITAMINS [Concomitant]
  2. ATIVAN [Concomitant]
  3. BUSPAR [Concomitant]
  4. ACTONEL [Concomitant]
  5. ZOMIG [Suspect]
     Indication: MIGRAINE
     Route: 048
     Dates: start: 20020101
  6. ZOLOFT [Concomitant]
  7. CALCIUM [Concomitant]

REACTIONS (1)
  - CARDIAC VALVE DISEASE [None]
